FAERS Safety Report 24602893 (Version 1)
Quarter: 2024Q4

REPORT INFORMATION
  Report Type: Spontaneous
  Country: TH (occurrence: TH)
  Receive Date: 20241111
  Receipt Date: 20241111
  Transmission Date: 20250114
  Serious: Yes (Other)
  Sender: MERCK
  Company Number: TH-009507513-2411THA002663

PATIENT
  Age: 90 Year
  Sex: Male

DRUGS (1)
  1. KEYTRUDA [Suspect]
     Active Substance: PEMBROLIZUMAB
     Indication: Bladder transitional cell carcinoma
     Dosage: UNK
     Dates: start: 202012, end: 20211217

REACTIONS (3)
  - Follicular cystitis [Unknown]
  - Urothelial papilloma [Unknown]
  - Adverse event [Unknown]

NARRATIVE: CASE EVENT DATE: 20220801
